FAERS Safety Report 25215486 (Version 1)
Quarter: 2025Q2

REPORT INFORMATION
  Report Type: Spontaneous
  Country: US (occurrence: US)
  Receive Date: 20250418
  Receipt Date: 20250418
  Transmission Date: 20250717
  Serious: No
  Sender: Phathom Pharmaceuticals
  Company Number: US-PHATHOM PHARMACEUTICALS INC.-2025PHT00117

PATIENT
  Age: 79 Year
  Sex: Female
  Weight: 72.562 kg

DRUGS (13)
  1. VOQUEZNA [Suspect]
     Active Substance: VONOPRAZAN FUMARATE
     Indication: Gastrooesophageal reflux disease
     Dosage: 20 MG, 1X/DAY
     Route: 048
     Dates: start: 20241228
  2. HERBALS [Concomitant]
     Active Substance: HERBALS
  3. METFORMIN [Concomitant]
     Active Substance: METFORMIN HYDROCHLORIDE
  4. BROMELAINS [Concomitant]
     Active Substance: BROMELAINS
  5. VITAMIN B12 [Concomitant]
     Active Substance: CYANOCOBALAMIN
  6. DIETARY SUPPLEMENT [Concomitant]
     Active Substance: DIETARY SUPPLEMENT
  7. UBIQUINOL [Concomitant]
     Active Substance: UBIQUINOL
  8. ZETIA [Concomitant]
     Active Substance: EZETIMIBE
  9. VITAMIN D [Concomitant]
     Active Substance: VITAMIN D NOS
  10. LISINOPRIL [Concomitant]
     Active Substance: LISINOPRIL
  11. BISOPROLOL FUMARATE [Concomitant]
     Active Substance: BISOPROLOL FUMARATE
  12. FISH OIL [Concomitant]
     Active Substance: FISH OIL
  13. VITAMINS [Concomitant]
     Active Substance: VITAMINS

REACTIONS (4)
  - Gastrooesophageal reflux disease [Not Recovered/Not Resolved]
  - Hypophagia [Not Recovered/Not Resolved]
  - Insomnia [Not Recovered/Not Resolved]
  - Drug ineffective [Unknown]

NARRATIVE: CASE EVENT DATE: 20241228
